FAERS Safety Report 11266356 (Version 4)
Quarter: 2016Q1

REPORT INFORMATION
  Report Type: Spontaneous
  Country: US (occurrence: US)
  Receive Date: 20150713
  Receipt Date: 20160111
  Transmission Date: 20160525
  Serious: Yes (Hospitalization)
  Sender: FDA-Public Use
  Company Number: US-JNJFOC-20150702879

PATIENT
  Age: 45 Year
  Sex: Female
  Weight: 76.2 kg

DRUGS (22)
  1. LORTAB [Concomitant]
     Active Substance: ACETAMINOPHEN\HYDROCODONE BITARTRATE
     Indication: ABDOMINAL PAIN
     Dates: start: 20130211
  2. XANAX [Concomitant]
     Active Substance: ALPRAZOLAM
     Indication: ANXIETY
     Dates: start: 2002
  3. FENTANYL. [Suspect]
     Active Substance: FENTANYL
     Indication: ABDOMINAL PAIN
     Route: 062
     Dates: start: 2012, end: 20150517
  4. FENTANYL. [Suspect]
     Active Substance: FENTANYL
     Indication: BONE PAIN
     Route: 062
     Dates: start: 2012, end: 20150517
  5. FENTANYL. [Suspect]
     Active Substance: FENTANYL
     Indication: PULMONARY PAIN
     Route: 062
     Dates: start: 2012, end: 20150517
  6. LORTAB [Concomitant]
     Active Substance: ACETAMINOPHEN\HYDROCODONE BITARTRATE
     Indication: BONE PAIN
     Dates: start: 20130211
  7. FENTANYL. [Suspect]
     Active Substance: FENTANYL
     Indication: ABDOMINAL PAIN
     Route: 062
     Dates: start: 20150518
  8. FULVESTRANT [Suspect]
     Active Substance: FULVESTRANT
     Indication: BREAST CANCER METASTATIC
     Dosage: DAY 1 AND DAY 15 OF CYCLE 1 THEN ONLY DAY 1 OF EVERY 28 DAY CYCLE
     Route: 030
     Dates: start: 20140128
  9. PERCOCET [Concomitant]
     Active Substance: ACETAMINOPHEN\OXYCODONE HYDROCHLORIDE
     Indication: PULMONARY PAIN
     Dates: start: 2012
  10. ATENOLOL. [Concomitant]
     Active Substance: ATENOLOL
     Indication: HYPERTENSION
     Dates: start: 2013
  11. CARAFATE [Concomitant]
     Active Substance: SUCRALFATE
     Indication: DUODENOGASTRIC REFLUX
     Dates: start: 20141019
  12. FENTANYL. [Suspect]
     Active Substance: FENTANYL
     Indication: PULMONARY PAIN
     Route: 062
     Dates: start: 20150518
  13. LORTAB [Concomitant]
     Active Substance: ACETAMINOPHEN\HYDROCODONE BITARTRATE
     Indication: PULMONARY PAIN
     Dates: start: 20130211
  14. ZOFRAN [Concomitant]
     Active Substance: ONDANSETRON HYDROCHLORIDE
     Indication: NAUSEA
     Dates: start: 2003
  15. PERCOCET [Concomitant]
     Active Substance: ACETAMINOPHEN\OXYCODONE HYDROCHLORIDE
     Indication: ABDOMINAL PAIN
     Dates: start: 2012
  16. VASOTEC [Concomitant]
     Active Substance: ENALAPRIL MALEATE
     Indication: HYPERTENSION
     Dates: start: 20140223
  17. CARDIZEM CD [Concomitant]
     Active Substance: DILTIAZEM HYDROCHLORIDE
     Indication: HYPERTENSION
     Dates: start: 20141029
  18. PROZAC [Concomitant]
     Active Substance: FLUOXETINE HYDROCHLORIDE
     Indication: DEPRESSION
     Dates: start: 2012
  19. PERCOCET [Concomitant]
     Active Substance: ACETAMINOPHEN\OXYCODONE HYDROCHLORIDE
     Indication: BONE PAIN
     Dates: start: 2012
  20. COMPAZINE [Concomitant]
     Active Substance: PROCHLORPERAZINE MALEATE
     Indication: NAUSEA
     Dates: start: 20141019
  21. ZOLOFT [Concomitant]
     Active Substance: SERTRALINE HYDROCHLORIDE
     Indication: ANXIETY
     Dates: start: 20150415
  22. FENTANYL. [Suspect]
     Active Substance: FENTANYL
     Indication: BONE PAIN
     Route: 062
     Dates: start: 20150518

REACTIONS (4)
  - Drug withdrawal convulsions [Recovered/Resolved]
  - Vomiting [Recovered/Resolved]
  - Nausea [Recovered/Resolved]
  - Abdominal pain [Recovered/Resolved]

NARRATIVE: CASE EVENT DATE: 20150518
